FAERS Safety Report 12897704 (Version 2)
Quarter: 2016Q4

REPORT INFORMATION
  Report Type: Report from Study
  Country: None (occurrence: TR)
  Receive Date: 20161031
  Receipt Date: 20161116
  Transmission Date: 20170207
  Serious: Yes (Other)
  Sender: FDA-Public Use
  Company Number: TR-ABBVIE-16P-161-1766655-00

PATIENT
  Age: 64 Year
  Sex: Male
  Weight: 105 kg

DRUGS (9)
  1. DUODOPA [Suspect]
     Active Substance: CARBIDOPA\LEVODOPA
     Indication: PARKINSON^S DISEASE
     Dosage: MORNIND DOSE: 15 ML??CONTINUOUS DOSE: 9.5 ML??EXTRA DOSE: 2 ML
     Route: 050
     Dates: start: 20161025
  2. EXFORGE [Concomitant]
     Active Substance: AMLODIPINE BESYLATE\VALSARTAN
     Indication: HYPERTENSION
     Dosage: 10/160 MG
     Route: 048
  3. HYPERIUM [Concomitant]
     Active Substance: RILMENIDINE PHOSPHATE
     Indication: HYPERTENSION
  4. MOTILIUM [Concomitant]
     Active Substance: DOMPERIDONE
     Indication: PARKINSON^S DISEASE
  5. AVODART [Concomitant]
     Active Substance: DUTASTERIDE
     Indication: BENIGN PROSTATIC HYPERPLASIA
     Route: 048
  6. MADOPAR [Concomitant]
     Active Substance: BENSERAZIDE HYDROCHLORIDE\LEVODOPA
     Indication: PARKINSON^S DISEASE
     Dosage: 1X3
     Route: 048
     Dates: start: 20161025
  7. UROREC [Concomitant]
     Active Substance: SILODOSIN
     Indication: BENIGN PROSTATIC HYPERPLASIA
     Route: 048
  8. VASOXEN [Concomitant]
     Indication: PRODUCT USED FOR UNKNOWN INDICATION
     Route: 048
  9. LUSTRAL [Concomitant]
     Active Substance: SERTRALINE HYDROCHLORIDE
     Indication: INSOMNIA
     Route: 048

REACTIONS (2)
  - Dyspnoea [Recovered/Resolved]
  - Pulmonary embolism [Recovered/Resolved]

NARRATIVE: CASE EVENT DATE: 2016
